FAERS Safety Report 5796255-1 (Version None)
Quarter: 2008Q3

REPORT INFORMATION
  Report Type: 
  Country: None (occurrence: None)
  Receive Date: 20080701
  Receipt Date: 20080618
  Transmission Date: 20090109
  Serious: Yes (Death, Hospitalization, Other)
  Sender: FDA-Public Use
  Company Number: DE-BAYER-200820994GPV

PATIENT
  Age: 21 Year
  Sex: Male

DRUGS (6)
  1. FLUDARABINE PHOSPHATE [Suspect]
     Indication: STEM CELL TRANSPLANT
     Route: 065
  2. OKT3 ANTIBODY [Concomitant]
     Indication: STEM CELL TRANSPLANT
  3. FOSCARNET [Concomitant]
     Indication: CYTOMEGALOVIRUS INFECTION
     Route: 065
  4. CYCLOSPORINE [Concomitant]
     Indication: PROPHYLAXIS
     Route: 065
  5. MOFETIL [Concomitant]
     Indication: PROPHYLAXIS
     Route: 065
  6. ACYCLOVIR [Concomitant]
     Indication: PROPHYLAXIS
     Route: 065

REACTIONS (8)
  - ACUTE GRAFT VERSUS HOST DISEASE IN SKIN [None]
  - CYTOMEGALOVIRUS INFECTION [None]
  - ENCEPHALITIS VIRAL [None]
  - FUNGAL INFECTION [None]
  - HERPES VIRUS INFECTION [None]
  - HUMAN POLYOMAVIRUS INFECTION [None]
  - INFECTION [None]
  - WEIGHT DECREASED [None]
